FAERS Safety Report 5248531-9 (Version None)
Quarter: 2007Q1

REPORT INFORMATION
  Report Type: 
  Country: None (occurrence: None)
  Receive Date: 20070227
  Receipt Date: 20070215
  Transmission Date: 20070707
  Serious: Yes (Other)
  Sender: FDA-Public Use
  Company Number: US-PFIZER INC-2007012733

PATIENT
  Sex: Female

DRUGS (1)
  1. SUTENT [Suspect]
     Indication: CARCINOID TUMOUR

REACTIONS (1)
  - PERICARDIAL EFFUSION [None]
